FAERS Safety Report 10230990 (Version 1)
Quarter: 2014Q2

REPORT INFORMATION
  Report Type: Spontaneous
  Country: US (occurrence: None)
  Receive Date: 20140610
  Receipt Date: 20140610
  Transmission Date: 20141212
  Serious: Yes (Hospitalization)
  Sender: FDA-Public Use
  Company Number: None

PATIENT
  Age: 8 Year
  Sex: Female
  Weight: 26.6 kg

DRUGS (5)
  1. CYTARABINE [Suspect]
  2. ONCASPAR [Suspect]
  3. DEXAMETHASONE [Suspect]
  4. METHOTREXATE [Suspect]
  5. VINCRISTINE SULFATE [Suspect]

REACTIONS (11)
  - Pyrexia [None]
  - Nausea [None]
  - Vomiting [None]
  - Abdominal pain [None]
  - Hypotension [None]
  - Pancreatitis acute [None]
  - Hypertriglyceridaemia [None]
  - Escherichia sepsis [None]
  - Colitis [None]
  - Neutropenia [None]
  - Hypertension [None]
